FAERS Safety Report 16054218 (Version 4)
Quarter: 2019Q2

REPORT INFORMATION
  Report Type: Spontaneous
  Country: PT (occurrence: PT)
  Receive Date: 20190308
  Receipt Date: 20190606
  Transmission Date: 20190711
  Serious: Yes (Other)
  Sender: FDA-Public Use
  Company Number: PT-MYLANLABS-2019M1021277

PATIENT
  Age: 32 Year
  Sex: Female

DRUGS (8)
  1. METYRAPONE [Concomitant]
     Active Substance: METYRAPONE
     Indication: PITUITARY TUMOUR BENIGN
     Dosage: UNK
  2. INSULIN [Concomitant]
     Active Substance: INSULIN NOS
     Indication: GESTATIONAL DIABETES
     Dosage: UNK
  3. METFORMIN [Suspect]
     Active Substance: METFORMIN HYDROCHLORIDE
     Indication: GESTATIONAL DIABETES
     Dosage: UNK
     Route: 065
  4. KETOCONAZOLE. [Suspect]
     Active Substance: KETOCONAZOLE
     Indication: PITUITARY TUMOUR BENIGN
     Dosage: 200 MILLIGRAM, QD
  5. METYRAPONE [Concomitant]
     Active Substance: METYRAPONE
     Indication: PITUITARY-DEPENDENT CUSHING^S SYNDROME
  6. INSULIN GLARGINE [Suspect]
     Active Substance: INSULIN GLARGINE
     Indication: GESTATIONAL DIABETES
     Dosage: UNK
     Route: 065
  7. METYRAPONE [Suspect]
     Active Substance: METYRAPONE
     Indication: PITUITARY TUMOUR BENIGN
     Dosage: UNK
  8. METYRAPONE [Concomitant]
     Active Substance: METYRAPONE
     Indication: CORTISOL INCREASED

REACTIONS (6)
  - Product use in unapproved indication [Unknown]
  - Maternal exposure during pregnancy [Recovered/Resolved]
  - Premature delivery [Recovered/Resolved]
  - Premature rupture of membranes [Recovered/Resolved]
  - Cellulitis [Unknown]
  - Cortisol increased [Recovering/Resolving]
